FAERS Safety Report 11659319 (Version 2)
Quarter: 2016Q1

REPORT INFORMATION
  Report Type: Spontaneous
  Country: IT (occurrence: IT)
  Receive Date: 20151026
  Receipt Date: 20160202
  Transmission Date: 20160525
  Serious: Yes (Other)
  Sender: FDA-Public Use
  Company Number: IT-ACCORD-034816

PATIENT
  Age: 71 Year

DRUGS (3)
  1. CARBIDOPA/LEVODOPA [Suspect]
     Active Substance: CARBIDOPA\LEVODOPA
     Indication: PARKINSON^S DISEASE
     Dosage: INTRAJEJUNAL INFUSION
  2. ROPINIROLE/ROPINIROLE HYDROCHLORIDE [Suspect]
     Active Substance: ROPINIROLE HYDROCHLORIDE
     Indication: PARKINSON^S DISEASE
  3. PRAMIPEXOLE/PRAMIPEXOLE DIHYDROCHLORIDE [Suspect]
     Active Substance: PRAMIPEXOLE DIHYDROCHLORIDE
     Indication: PARKINSON^S DISEASE

REACTIONS (3)
  - Dopamine dysregulation syndrome [Unknown]
  - Stereotypy [Unknown]
  - Drug withdrawal syndrome [Unknown]
